FAERS Safety Report 11442501 (Version 1)
Quarter: 2015Q3

REPORT INFORMATION
  Report Type: Spontaneous
  Country: US (occurrence: US)
  Receive Date: 20150901
  Receipt Date: 20150901
  Transmission Date: 20151125
  Serious: Yes (Other)
  Sender: FDA-Public Use
  Company Number: US-TARO-2015TAR00800

PATIENT
  Age: 1 Year
  Sex: Female
  Weight: 8.16 kg

DRUGS (1)
  1. CHILDRENS CETIRIZINE HYDROCHLORIDE SUGAR FREE GRAPE [Suspect]
     Active Substance: CETIRIZINE HYDROCHLORIDE
     Indication: CONJUNCTIVITIS VIRAL
     Dosage: 2.5 ML, ONCE
     Route: 048
     Dates: start: 20150822, end: 20150822

REACTIONS (3)
  - Drug administered to patient of inappropriate age [Recovered/Resolved]
  - Off label use [Recovered/Resolved]
  - Febrile convulsion [Recovered/Resolved]

NARRATIVE: CASE EVENT DATE: 20150822
